FAERS Safety Report 21991828 (Version 3)
Quarter: 2023Q1

REPORT INFORMATION
  Report Type: Report from Study
  Country: US (occurrence: US)
  Receive Date: 20230214
  Receipt Date: 20230327
  Transmission Date: 20230418
  Serious: No
  Sender: FDA-Public Use
  Company Number: US-BIOMARINAP-US-2023-148525

PATIENT

DRUGS (4)
  1. PALYNZIQ [Suspect]
     Active Substance: PEGVALIASE-PQPZ
     Indication: Phenylketonuria
     Dosage: 10 MILLIGRAM, QD
     Route: 058
  2. PALYNZIQ [Suspect]
     Active Substance: PEGVALIASE-PQPZ
     Dosage: UNK
     Route: 058
     Dates: start: 202301
  3. FOLATE SODIUM [Concomitant]
     Active Substance: FOLATE SODIUM
     Indication: Supplementation therapy
  4. VITAMINS [Concomitant]
     Active Substance: VITAMINS
     Indication: Pregnancy
     Dosage: UNK, QD
     Dates: start: 202209

REACTIONS (1)
  - Maternal exposure during pregnancy [Unknown]
